FAERS Safety Report 5077829-2 (Version None)
Quarter: 2006Q3

REPORT INFORMATION
  Report Type: 
  Country: None (occurrence: None)
  Receive Date: 20060810
  Receipt Date: 20060626
  Transmission Date: 20061208
  Serious: Yes (Death)
  Sender: FDA-Public Use
  Company Number: US-AMGEN-STX184305

PATIENT
  Sex: Male
  Weight: 89.4 kg

DRUGS (5)
  1. ENBREL [Suspect]
     Indication: BRONCHIOLITIS
     Route: 065
     Dates: start: 20060110, end: 20060603
  2. PREDNISONE [Concomitant]
     Dates: start: 20051108
  3. METHOTREXATE [Concomitant]
     Dates: start: 20060110, end: 20060508
  4. AZATHIOPRINE SODIUM [Concomitant]
     Dates: start: 20060508
  5. INSULIN [Concomitant]
     Dates: start: 20060524

REACTIONS (2)
  - BRONCHIOLITIS [None]
  - DISEASE PROGRESSION [None]
